FAERS Safety Report 10580301 (Version 4)
Quarter: 2015Q1

REPORT INFORMATION
  Report Type: Spontaneous
  Country: DK (occurrence: DK)
  Receive Date: 20141112
  Receipt Date: 20150112
  Transmission Date: 20150720
  Serious: Yes (Hospitalization)
  Sender: FDA-Public Use
  Company Number: ALCN2014DK006309

PATIENT
  Age: 81 Year
  Sex: Female

DRUGS (10)
  1. LIDOCAINE. [Concomitant]
     Active Substance: LIDOCAINE
     Indication: INTRAOPERATIVE CARE
  2. NEVANAC [Suspect]
     Active Substance: NEPAFENAC
     Indication: POSTOPERATIVE CARE
     Dosage: UNK
     Route: 047
  3. LIDOCAINE. [Concomitant]
     Active Substance: LIDOCAINE
     Indication: CATARACT OPERATION
     Dosage: UNK
     Route: 065
  4. LIDOCAINE. [Concomitant]
     Active Substance: LIDOCAINE
     Indication: CATARACT OPERATION
     Dosage: UNK
  5. CEFUROXIME. [Concomitant]
     Active Substance: CEFUROXIME
     Indication: CATARACT OPERATION
     Dosage: 1 MG, ONCE/SINGLE
     Route: 065
  6. CEFUROXIME. [Concomitant]
     Active Substance: CEFUROXIME
     Indication: INTRAOPERATIVE CARE
  7. LIDOCAINE. [Concomitant]
     Active Substance: LIDOCAINE
     Indication: INTRAOPERATIVE CARE
  8. HEALON [Concomitant]
     Indication: INTRAOPERATIVE CARE
  9. POVIDONE IODINE [Concomitant]
     Active Substance: POVIDONE-IODINE
     Indication: PREOPERATIVE CARE
     Dosage: UNK
     Route: 061
  10. HEALON [Concomitant]
     Indication: CATARACT OPERATION
     Dosage: UNK

REACTIONS (4)
  - Vitritis [Unknown]
  - Endophthalmitis [Unknown]
  - Corneal oedema [Unknown]
  - Enterococcal infection [Unknown]

NARRATIVE: CASE EVENT DATE: 20140928
